FAERS Safety Report 25247887 (Version 2)
Quarter: 2025Q2

REPORT INFORMATION
  Report Type: Report from Study
  Country: US (occurrence: US)
  Receive Date: 20250429
  Receipt Date: 20250506
  Transmission Date: 20250716
  Serious: Yes (Other)
  Sender: ABBVIE
  Company Number: US-ABBVIE-6247371

PATIENT
  Sex: Female

DRUGS (4)
  1. HUMIRA [Suspect]
     Active Substance: ADALIMUMAB
     Indication: Product used for unknown indication
     Route: 058
     Dates: start: 2014
  2. COSENTYX [Suspect]
     Active Substance: SECUKINUMAB
     Indication: Product used for unknown indication
     Route: 065
  3. OTEZLA [Suspect]
     Active Substance: APREMILAST
     Indication: Product used for unknown indication
     Route: 065
  4. CIMZIA [Suspect]
     Active Substance: CERTOLIZUMAB PEGOL
     Indication: Product used for unknown indication
     Route: 065

REACTIONS (8)
  - Blindness [Recovered/Resolved]
  - Psoriasis [Recovered/Resolved]
  - Diarrhoea [Recovered/Resolved]
  - Crohn^s disease [Unknown]
  - Therapeutic product effect incomplete [Unknown]
  - Tachycardia [Recovered/Resolved]
  - Uveitis [Recovered/Resolved]
  - Psoriatic arthropathy [Recovered/Resolved]
